FAERS Safety Report 20953389 (Version 6)
Quarter: 2024Q3

REPORT INFORMATION
  Report Type: Report from Study
  Country: US (occurrence: US)
  Receive Date: 20220613
  Receipt Date: 20240926
  Transmission Date: 20241017
  Serious: No
  Sender: NOVARTIS
  Company Number: US-NOVARTISTESTPH-NVSC2022US135272

PATIENT
  Age: 83 Year
  Sex: Female

DRUGS (1)
  1. ENTRESTO [Suspect]
     Active Substance: SACUBITRIL\VALSARTAN
     Indication: Product used for unknown indication
     Dosage: 0.5 DOSAGE FORM, BID
     Route: 065
     Dates: start: 20210423

REACTIONS (3)
  - Hypoacusis [Unknown]
  - Wrong technique in product usage process [Unknown]
  - Memory impairment [Unknown]

NARRATIVE: CASE EVENT DATE: 20220610
